FAERS Safety Report 8133120 (Version 8)
Quarter: 2013Q1

REPORT INFORMATION
  Report Type: Report from Study
  Country: FR (occurrence: FR)
  Receive Date: 20110913
  Receipt Date: 20130314
  Transmission Date: 20140127
  Serious: Yes (Hospitalization, Other)
  Sender: FDA-Public Use
  Company Number: FR-ROCHE-800734

PATIENT
  Age: 66 Year
  Sex: Male
  Weight: 79 kg

DRUGS (8)
  1. BEVACIZUMAB [Suspect]
     Indication: COLORECTAL CANCER
     Route: 042
     Dates: start: 20110502, end: 20110719
  2. LEVOFOLINATE [Concomitant]
     Indication: COLORECTAL CANCER
     Route: 042
     Dates: start: 20110502, end: 20110719
  3. IRINOTECAN [Concomitant]
     Indication: COLORECTAL CANCER
     Route: 042
     Dates: start: 20110502, end: 20110719
  4. FLUOROURACIL [Concomitant]
     Indication: COLORECTAL CANCER
     Route: 042
     Dates: start: 20110502, end: 20110719
  5. FLUOROURACIL [Concomitant]
     Route: 042
     Dates: start: 20110502, end: 20110719
  6. ZOPHREN [Concomitant]
     Indication: NAUSEA
     Dosage: FREQ:  ONE OF EACH COURSE.
     Route: 042
     Dates: start: 20110502, end: 20110719
  7. CORTANCYL [Concomitant]
     Indication: DERMATOMYOSITIS
     Dosage: FREQ:  DAILY.
     Route: 048
  8. SOLU-MEDROL [Concomitant]
     Indication: NAUSEA
     Dosage: FREQ:  DAY 1 OF EACH CYCLE OF CHEMOTHERAPY.
     Route: 042
     Dates: start: 20110502, end: 20110719

REACTIONS (4)
  - Cardiac failure [Recovered/Resolved]
  - Atrial fibrillation [Recovered/Resolved]
  - Cardiac arrest [Recovered/Resolved]
  - Atrial fibrillation [Unknown]
